FAERS Safety Report 10549988 (Version 2)
Quarter: 2015Q2

REPORT INFORMATION
  Report Type: Spontaneous
  Country: US (occurrence: None)
  Receive Date: 20141020
  Receipt Date: 20150420
  Transmission Date: 20150821
  Serious: No
  Sender: FDA-Public Use
  Company Number: AEGR000771

PATIENT
  Age: 30 Year
  Sex: Male
  Weight: 81.6 kg

DRUGS (1)
  1. JUXTAPID [Suspect]
     Active Substance: LOMITAPIDE MESYLATE
     Indication: TYPE IIA HYPERLIPIDAEMIA
     Route: 048
     Dates: start: 20140718, end: 20140906

REACTIONS (2)
  - Pain [None]
  - Myalgia [None]

NARRATIVE: CASE EVENT DATE: 20140903
